FAERS Safety Report 20837928 (Version 1)
Quarter: 2022Q2

REPORT INFORMATION
  Report Type: Spontaneous
  Country: US (occurrence: US)
  Receive Date: 20220517
  Receipt Date: 20220517
  Transmission Date: 20220721
  Serious: No
  Sender: FDA-Public Use
  Company Number: US-ALLERGAN-2131329US

PATIENT
  Age: 64 Year
  Sex: Female

DRUGS (2)
  1. KYBELLA [Suspect]
     Active Substance: DEOXYCHOLIC ACID
     Indication: Fat tissue increased
     Dosage: 1 VIAL, SINGLE
     Dates: start: 20200711, end: 20200711
  2. ORAL AGENTS [Concomitant]
     Indication: Type 2 diabetes mellitus
     Route: 048

REACTIONS (6)
  - Injection site hyperaesthesia [Not Recovered/Not Resolved]
  - Neck pain [Recovering/Resolving]
  - Injection site hypoaesthesia [Not Recovered/Not Resolved]
  - Injection site pain [Not Recovered/Not Resolved]
  - Injection site paraesthesia [Not Recovered/Not Resolved]
  - Injection site nodule [Recovering/Resolving]

NARRATIVE: CASE EVENT DATE: 20200101
